FAERS Safety Report 17835448 (Version 1)
Quarter: 2020Q2

REPORT INFORMATION
  Report Type: Spontaneous
  Country: US (occurrence: US)
  Receive Date: 20200528
  Receipt Date: 20200528
  Transmission Date: 20200714
  Serious: No
  Sender: FDA-Public Use
  Company Number: US-CURRAX PHARMACEUTICALS LLC-US-2020PER000026

PATIENT
  Sex: Female

DRUGS (1)
  1. SUMATRIPTAN SUCCINATE, NAPROXEN SODIUM [Suspect]
     Active Substance: NAPROXEN SODIUM\SUMATRIPTAN SUCCINATE
     Indication: MIGRAINE
     Dosage: 85/500MG
     Route: 048

REACTIONS (1)
  - Drug ineffective [Unknown]
